FAERS Safety Report 7122510-9 (Version None)
Quarter: 2010Q4

REPORT INFORMATION
  Report Type: 
  Country: None (occurrence: None)
  Receive Date: 20101124
  Receipt Date: 20101122
  Transmission Date: 20110411
  Serious: Yes (Life-Threatening, Hospitalization)
  Sender: FDA-Public Use
  Company Number: RU-ROCHE-743450

PATIENT
  Sex: Female
  Weight: 73 kg

DRUGS (1)
  1. AVASTIN [Suspect]
     Indication: OVARIAN CANCER
     Dosage: FREQUENCY: ONCE EVERY, LAST DOSE PRIOR TO SAE ON 16 NOV 2010, DOSE: UNKOWN
     Route: 042
     Dates: start: 20091201

REACTIONS (1)
  - INTRACRANIAL ANEURYSM [None]
